FAERS Safety Report 20085618 (Version 1)
Quarter: 2021Q4

REPORT INFORMATION
  Report Type: Report from Study
  Country: TW (occurrence: TW)
  Receive Date: 20211118
  Receipt Date: 20211118
  Transmission Date: 20220303
  Serious: Yes (Hospitalization)
  Sender: FDA-Public Use
  Company Number: TW-Merck Healthcare KGaA-9278207

PATIENT
  Age: 61 Year
  Sex: Female

DRUGS (5)
  1. CETUXIMAB [Suspect]
     Active Substance: CETUXIMAB
     Indication: Tongue cancer recurrent
     Dosage: 250 MG/M2, WEEKLY (1/W)
     Route: 041
  2. CISPLATIN [Concomitant]
     Active Substance: CISPLATIN
     Indication: Tongue cancer recurrent
     Dosage: UNK UNK, UNKNOWN
     Route: 065
  3. METHOTREXATE [Concomitant]
     Active Substance: METHOTREXATE
     Indication: Tongue cancer recurrent
     Dosage: UNK, OTHER (EVERY 21 DAYS)
  4. EPIRUBICIN [Concomitant]
     Active Substance: EPIRUBICIN
     Indication: Tongue cancer recurrent
     Dosage: UNK UNK, UNKNOWN
     Route: 065
  5. MITOMYCIN [Concomitant]
     Active Substance: MITOMYCIN
     Indication: Product used for unknown indication
     Dosage: UNK UNK, UNKNOWN
     Route: 065

REACTIONS (3)
  - Pyrexia [Recovered/Resolved]
  - White blood cell count decreased [Recovered/Resolved]
  - Off label use [Unknown]

NARRATIVE: CASE EVENT DATE: 20211031
